FAERS Safety Report 4712027-0 (Version None)
Quarter: 2005Q3

REPORT INFORMATION
  Report Type: 
  Country: None (occurrence: None)
  Receive Date: 20050712
  Receipt Date: 20050705
  Transmission Date: 20060218
  Serious: Yes (Death, Other)
  Sender: FDA-Public Use
  Company Number: PHBS2005NO09632

PATIENT

DRUGS (1)
  1. ZOMETA [Suspect]
     Route: 065

REACTIONS (2)
  - DEATH [None]
  - OSTEOMYELITIS [None]
